FAERS Safety Report 16096454 (Version 1)
Quarter: 2019Q1

REPORT INFORMATION
  Report Type: Spontaneous
  Country: US (occurrence: US)
  Receive Date: 20190320
  Receipt Date: 20190320
  Transmission Date: 20190418
  Serious: No
  Sender: FDA-Public Use
  Company Number: US-SUNOVION-2019SUN001028

PATIENT
  Sex: Female
  Weight: 45.81 kg

DRUGS (3)
  1. LATUDA [Suspect]
     Active Substance: LURASIDONE HYDROCHLORIDE
     Indication: BIPOLAR DISORDER
     Dosage: 80 UNK
     Route: 048
     Dates: start: 201901
  2. LATUDA [Suspect]
     Active Substance: LURASIDONE HYDROCHLORIDE
     Dosage: 120 MG
     Route: 048
  3. LATUDA [Suspect]
     Active Substance: LURASIDONE HYDROCHLORIDE
     Indication: PSYCHOTIC DISORDER
     Dosage: 40 MG
     Route: 048
     Dates: end: 201901

REACTIONS (4)
  - Off label use [Unknown]
  - Tardive dyskinesia [Not Recovered/Not Resolved]
  - Muscle tightness [Unknown]
  - Initial insomnia [Unknown]
